FAERS Safety Report 4482646-8 (Version None)
Quarter: 2004Q4

REPORT INFORMATION
  Report Type: 
  Country: None (occurrence: None)
  Receive Date: 20041022
  Receipt Date: 20040504
  Transmission Date: 20050328
  Serious: Yes (Hospitalization)
  Sender: FDA-Public Use
  Company Number: EMADSS2003004042

PATIENT
  Sex: Male
  Weight: 78 kg

DRUGS (5)
  1. R115777 [Concomitant]
     Route: 049
     Dates: start: 20030325, end: 20030520
  2. SEMPERA [Suspect]
     Indication: DRUG USE FOR UNKNOWN INDICATION
     Route: 049
  3. KALINOR [Concomitant]
     Route: 049
  4. LASIX [Concomitant]
     Route: 065
  5. XANEF [Concomitant]
     Route: 065

REACTIONS (8)
  - ASTHENIA [None]
  - BLOOD CULTURE POSITIVE [None]
  - HAEMOPTYSIS [None]
  - PANCYTOPENIA [None]
  - PNEUMONIA [None]
  - PSEUDOMONAS INFECTION [None]
  - PYREXIA [None]
  - VOMITING [None]
